FAERS Safety Report 20263539 (Version 1)
Quarter: 2021Q4

REPORT INFORMATION
  Report Type: Spontaneous
  Country: ES (occurrence: ES)
  Receive Date: 20211231
  Receipt Date: 20211231
  Transmission Date: 20220304
  Serious: Yes (Life-Threatening, Hospitalization)
  Sender: FDA-Public Use
  Company Number: None

PATIENT
  Age: 25 Year
  Sex: Female

DRUGS (4)
  1. PREGABALIN [Interacting]
     Active Substance: PREGABALIN
     Dosage: 300 MG, PREGABALINE (3897A)
     Route: 048
     Dates: start: 20200723
  2. OLANZAPINE [Interacting]
     Active Substance: OLANZAPINE
     Dosage: 10 MG, OLANZAPINE (2770A)
     Route: 048
     Dates: start: 20200730, end: 20210930
  3. BACLOFEN [Interacting]
     Active Substance: BACLOFEN
     Indication: Muscle spasticity
     Dosage: 15 MG, BACLOFENE (454A)
     Route: 048
     Dates: start: 20200723, end: 20210930
  4. CEFTRIAXONE [Concomitant]
     Active Substance: CEFTRIAXONE
     Indication: Pyelonephritis acute
     Dosage: CEFTRIAXONE (501A)
     Route: 030
     Dates: start: 20210928, end: 20210930

REACTIONS (2)
  - Coma [Recovered/Resolved]
  - Drug interaction [Unknown]

NARRATIVE: CASE EVENT DATE: 20210930
